FAERS Safety Report 11786667 (Version 2)
Quarter: 2016Q1

REPORT INFORMATION
  Report Type: Spontaneous
  Country: US (occurrence: US)
  Receive Date: 20151130
  Receipt Date: 20160121
  Transmission Date: 20160525
  Serious: No
  Sender: FDA-Public Use
  Company Number: CHPA2015US014104

PATIENT
  Age: 76 Year
  Sex: Female

DRUGS (2)
  1. VOLTAREN [Suspect]
     Active Substance: DICLOFENAC SODIUM
     Indication: HYPERKERATOSIS
  2. VOLTAREN [Suspect]
     Active Substance: DICLOFENAC SODIUM
     Indication: FOOT DEFORMITY
     Dosage: A LITTLE DOT, OFF AND ON
     Route: 061
     Dates: start: 201501, end: 2015

REACTIONS (6)
  - Feeling abnormal [Not Recovered/Not Resolved]
  - Neuralgia [Not Recovered/Not Resolved]
  - Product use issue [Unknown]
  - Hypoaesthesia [Not Recovered/Not Resolved]
  - Inappropriate schedule of drug administration [Unknown]
  - Drug ineffective for unapproved indication [Unknown]

NARRATIVE: CASE EVENT DATE: 2015
